FAERS Safety Report 8151002-3 (Version None)
Quarter: 2012Q1

REPORT INFORMATION
  Report Type: 
  Country: None (occurrence: None)
  Receive Date: 20120220
  Receipt Date: 20120215
  Transmission Date: 20120608
  Serious: Yes (Life-Threatening, Hospitalization)
  Sender: FDA-Public Use
  Company Number: US-BRISTOL-MYERS SQUIBB COMPANY-16107732

PATIENT
  Age: 68 Year
  Sex: Male

DRUGS (13)
  1. TEMAZEPAM [Concomitant]
     Indication: POOR QUALITY SLEEP
     Dates: start: 20110903, end: 20110907
  2. FOSINOPRIL SODIUM [Concomitant]
     Indication: BLOOD PRESSURE
     Dates: start: 20011105, end: 20110903
  3. VARDENAFIL HYDROCHLORIDE (LEVITRA) [Concomitant]
     Indication: ERECTILE DYSFUNCTION
     Dates: start: 20090521, end: 20110915
  4. BISACODYL [Concomitant]
     Indication: CONSTIPATION
     Dates: start: 20110902, end: 20110916
  5. PROMETHAZINE [Concomitant]
     Indication: NAUSEA
     Dates: start: 20110903, end: 20110927
  6. AMLODIPINE BESYLATE [Concomitant]
     Indication: BLOOD PRESSURE
     Dates: start: 20090219
  7. ISOPHANE INSULIN [Concomitant]
     Indication: DIABETES MELLITUS
     Dates: start: 20110613
  8. INSULIN ASPART [Concomitant]
     Indication: DIABETES MELLITUS
     Dates: start: 20110903, end: 20110927
  9. ONDANSETRON [Concomitant]
     Indication: PREMEDICATION
     Dates: start: 20110826, end: 20110826
  10. CISPLATIN [Suspect]
     Indication: METASTATIC GASTRIC CANCER
     Dosage: IV DRIP
     Route: 042
     Dates: start: 20110826, end: 20110826
  11. APREPITANT [Concomitant]
     Indication: PREMEDICATION
     Dates: start: 20110826, end: 20110828
  12. TEGAFUR + GIMERACIL + OTERACIL POTASSIUM [Suspect]
     Indication: METASTATIC GASTRIC CANCER
     Dosage: INTR ON 01SEP11.
     Route: 048
     Dates: start: 20110825
  13. NIACIN [Concomitant]
     Indication: BLOOD CHOLESTEROL
     Dates: start: 20010419, end: 20110915

REACTIONS (4)
  - ANAEMIA [None]
  - GASTROINTESTINAL HAEMORRHAGE [None]
  - BLOOD CREATININE INCREASED [None]
  - CONVULSION [None]
